FAERS Safety Report 7440392-2 (Version None)
Quarter: 2011Q2

REPORT INFORMATION
  Report Type: 
  Country: None (occurrence: None)
  Receive Date: 20110427
  Receipt Date: 20110426
  Transmission Date: 20111010
  Serious: Yes (Other)
  Sender: FDA-Public Use
  Company Number: IE-PFIZER INC-2010161313

PATIENT
  Age: 65 Year
  Sex: Female

DRUGS (4)
  1. DILZEM [Concomitant]
     Dosage: UNK
  2. LIPITOR [Concomitant]
     Dosage: UNK
  3. CARDURA [Suspect]
     Indication: BLOOD PRESSURE INCREASED
     Dosage: 4 MG, 1X/DAY
     Route: 048
     Dates: end: 20101130
  4. DEXTROL [Concomitant]
     Dosage: UNK

REACTIONS (1)
  - MEDICATION RESIDUE [None]
